FAERS Safety Report 18769765 (Version 5)
Quarter: 2022Q2

REPORT INFORMATION
  Report Type: Report from Study
  Country: GB (occurrence: GB)
  Receive Date: 20210121
  Receipt Date: 20220423
  Transmission Date: 20220720
  Serious: Yes (Death, Hospitalization, Disabling, Other)
  Sender: FDA-Public Use
  Company Number: None

PATIENT
  Age: 47 Year
  Sex: Female

DRUGS (16)
  1. DOCETAXEL [Suspect]
     Active Substance: DOCETAXEL
     Indication: Breast cancer metastatic
     Route: 042
     Dates: start: 20151022, end: 20151022
  2. IRINOTECAN [Suspect]
     Active Substance: IRINOTECAN
     Indication: Breast cancer metastatic
     Dosage: 108 MG, QW3
     Route: 042
     Dates: start: 20151120, end: 20160222
  3. LETROZOLE [Suspect]
     Active Substance: LETROZOLE
     Indication: Breast cancer metastatic
     Dosage: 2.5 MG, QD
     Route: 048
     Dates: start: 20160308, end: 20161123
  4. PERTUZUMAB [Suspect]
     Active Substance: PERTUZUMAB
     Indication: Breast cancer metastatic
     Dosage: 420 MG, QW3 (MAINTENANCE DOSE)
     Route: 042
     Dates: start: 20151120, end: 20161104
  5. TRASTUZUMAB [Suspect]
     Active Substance: TRASTUZUMAB
     Indication: Breast cancer metastatic
     Dosage: 525 MG, UNK (LOADING DOSE)
     Route: 042
     Dates: start: 20151023, end: 20151023
  6. ADO-TRASTUZUMAB EMTANSINE [Suspect]
     Active Substance: ADO-TRASTUZUMAB EMTANSINE
     Indication: Breast cancer metastatic
     Route: 042
     Dates: start: 20161201, end: 20170302
  7. FILGRASTIM [Concomitant]
     Active Substance: FILGRASTIM
     Indication: Prophylaxis
     Route: 058
     Dates: start: 20151120, end: 20151127
  8. GLYCOPYRRONIUM [Concomitant]
     Active Substance: GLYCOPYRRONIUM
     Indication: Palliative care
     Dosage: 400 UG, PRN
     Route: 058
     Dates: start: 20170919, end: 20170920
  9. HALOPERIDOL [Concomitant]
     Active Substance: HALOPERIDOL
     Indication: Palliative care
     Dosage: 1.5 MG, BID
     Route: 048
     Dates: start: 20170810, end: 20170919
  10. HYDROCORTISONE [Concomitant]
     Active Substance: HYDROCORTISONE
     Indication: Prophylaxis
     Dosage: 100 MG (0.33 WEEK)
     Route: 042
     Dates: start: 20151022, end: 20160222
  11. LANSOPRAZOLE [Concomitant]
     Active Substance: LANSOPRAZOLE
     Indication: Prophylaxis
     Dosage: 30 MG, QD
     Route: 048
     Dates: start: 20170728, end: 20170905
  12. MIDAZOLAM [Concomitant]
     Active Substance: MIDAZOLAM
     Indication: Palliative care
     Dosage: 2.5 MG, PRN
     Route: 058
  13. MORPHINE SULFATE [Concomitant]
     Active Substance: MORPHINE SULFATE
     Indication: Palliative care
     Dosage: 2.5 MG, PRN
     Route: 058
     Dates: start: 20170918, end: 20170920
  14. ZOLEDRONIC ACID [Concomitant]
     Active Substance: ZOLEDRONIC ACID
     Indication: Product used for unknown indication
     Dosage: 4 MG, QMO
     Route: 042
     Dates: start: 20151022, end: 20170713
  15. CHLORPHENIRAMINE MALEATE [Concomitant]
     Active Substance: CHLORPHENIRAMINE MALEATE
     Indication: Prophylaxis
     Route: 042
     Dates: start: 20151022, end: 20160222
  16. DEXAMETHASONE [Concomitant]
     Active Substance: DEXAMETHASONE
     Dosage: 4 MG (0.5 DAY)
     Route: 048
     Dates: start: 20170809, end: 20170919

REACTIONS (19)
  - Rectal haemorrhage [Fatal]
  - Off label use [Unknown]
  - Abnormal sensation in eye [Recovered/Resolved]
  - Oropharyngeal pain [Recovered/Resolved]
  - Migraine [Not Recovered/Not Resolved]
  - Lethargy [Not Recovered/Not Resolved]
  - Hypocalcaemia [Not Recovered/Not Resolved]
  - Asthenia [Recovered/Resolved]
  - Depression [Not Recovered/Not Resolved]
  - Nasopharyngitis [Recovered/Resolved]
  - Decreased appetite [Recovered/Resolved]
  - Dyschezia [Not Recovered/Not Resolved]
  - Insomnia [Recovered/Resolved]
  - Neuropathy peripheral [Recovered/Resolved]
  - Nausea [Recovered/Resolved]
  - Conjunctivitis [Recovered/Resolved]
  - Vulvovaginal candidiasis [Recovered/Resolved]
  - Urinary tract infection [Recovered/Resolved]
  - Oral candidiasis [Recovered/Resolved]

NARRATIVE: CASE EVENT DATE: 20151229
